FAERS Safety Report 5654892-9 (Version None)
Quarter: 2008Q1

REPORT INFORMATION
  Report Type: 
  Country: None (occurrence: None)
  Receive Date: 20080307
  Receipt Date: 20070827
  Transmission Date: 20080703
  Serious: No
  Sender: FDA-Public Use
  Company Number: A0676670A

PATIENT
  Age: 55 Year
  Sex: Female

DRUGS (8)
  1. REQUIP [Suspect]
     Indication: PERIODIC LIMB MOVEMENT DISORDER
     Dosage: 1MG PER DAY
     Route: 048
     Dates: start: 20070701
  2. AROMASIN [Suspect]
     Indication: BREAST CANCER
     Dosage: 25MG PER DAY
     Route: 048
     Dates: start: 20070601
  3. LEVOXYL [Concomitant]
  4. FOSAMAX PLUS D [Concomitant]
  5. LASIX [Concomitant]
  6. CALCIUM [Concomitant]
  7. ASPIRIN [Concomitant]
  8. MULTI-VITAMIN [Concomitant]

REACTIONS (3)
  - DRUG INTERACTION [None]
  - SOMNOLENCE [None]
  - THERAPEUTIC RESPONSE UNEXPECTED [None]
